FAERS Safety Report 5535344-3 (Version None)
Quarter: 2007Q4

REPORT INFORMATION
  Report Type: 
  Country: None (occurrence: None)
  Receive Date: 20071206
  Receipt Date: 20071129
  Transmission Date: 20080405
  Serious: Yes (Other)
  Sender: FDA-Public Use
  Company Number: DE-PFIZER INC-2007100716

PATIENT
  Age: 70 Year
  Sex: Female

DRUGS (2)
  1. CABASERIL [Suspect]
     Indication: PARKINSON'S DISEASE
     Route: 048
  2. MIRTAZAPINE [Suspect]
     Indication: DEPRESSION
     Route: 048

REACTIONS (1)
  - ANAEMIA [None]
